FAERS Safety Report 9340989 (Version 2)
Quarter: 2013Q3

REPORT INFORMATION
  Report Type: Spontaneous
  Country: US (occurrence: FR)
  Receive Date: 20130531
  Receipt Date: 20130702
  Transmission Date: 20140515
  Serious: Yes (Other)
  Sender: FDA-Public Use
  Company Number: 2013036163

PATIENT
  Sex: Male

DRUGS (13)
  1. PRIVIGEN [Suspect]
     Indication: PROPHYLAXIS AGAINST TRANSPLANT REJECTION
     Route: 042
  2. MABTHERA [Suspect]
  3. BACTRIM [Suspect]
  4. EUPANTOL [Suspect]
  5. METHYLPREDNISOLONE [Suspect]
  6. TACROLIMUS (TACROLIMUS) [Concomitant]
  7. CELLCEPT (MYCOPHENOLATE MOFETIL) [Concomitant]
  8. ALLOPURINOL [Concomitant]
  9. ADCO-SIMVASTATIN (SIMVASTATIN) [Concomitant]
  10. KARDEGIC [Concomitant]
  11. SOLUPREP [Concomitant]
  12. ZOLPIDEM (ZOLPIDEM) [Concomitant]
  13. EZETROL (EETIMIBE) [Concomitant]

REACTIONS (1)
  - Thrombocytopenia [None]
